FAERS Safety Report 21630823 (Version 1)
Quarter: 2022Q4

REPORT INFORMATION
  Report Type: Report from Study
  Country: US (occurrence: US)
  Receive Date: 20221123
  Receipt Date: 20221123
  Transmission Date: 20230113
  Serious: No
  Sender: FDA-Public Use
  Company Number: US-ABBVIE-4208383

PATIENT
  Sex: Male

DRUGS (12)
  1. IMBRUVICA [Suspect]
     Active Substance: IBRUTINIB
     Indication: Waldenstrom^s macroglobulinaemia
     Route: 048
     Dates: start: 20221106
  2. CYANOCOBALAMIN [Concomitant]
     Active Substance: CYANOCOBALAMIN
     Indication: Product used for unknown indication
  3. FOSAMAX [Concomitant]
     Active Substance: ALENDRONATE SODIUM
     Indication: Product used for unknown indication
     Dosage: 70MG
  4. CALCIUM CARBONATE [Concomitant]
     Active Substance: CALCIUM CARBONATE
     Indication: Product used for unknown indication
  5. CHOLECALCIFEROL [Concomitant]
     Active Substance: CHOLECALCIFEROL
     Indication: Product used for unknown indication
  6. TAMSULOSIN [Concomitant]
     Active Substance: TAMSULOSIN
     Indication: Product used for unknown indication
     Dosage: 0.4MG
  7. VITAMIN D3 [Concomitant]
     Active Substance: CHOLECALCIFEROL
     Indication: Product used for unknown indication
  8. LOSARTAN [Concomitant]
     Active Substance: LOSARTAN
     Indication: Product used for unknown indication
     Dosage: 12.5MG
  9. XARELTO [Concomitant]
     Active Substance: RIVAROXABAN
     Indication: Product used for unknown indication
     Dosage: 15MG
  10. DORZOLAMIDE [Concomitant]
     Active Substance: DORZOLAMIDE
     Indication: Product used for unknown indication
  11. CALCIUM [Concomitant]
     Active Substance: CALCIUM
     Indication: Product used for unknown indication
  12. LATANOPROST [Concomitant]
     Active Substance: LATANOPROST
     Indication: Product used for unknown indication

REACTIONS (1)
  - Rash [Not Recovered/Not Resolved]
